FAERS Safety Report 7325557-2 (Version None)
Quarter: 2011Q1

REPORT INFORMATION
  Report Type: 
  Country: None (occurrence: None)
  Receive Date: 20110302
  Receipt Date: 20110225
  Transmission Date: 20110831
  Serious: Yes (Other)
  Sender: FDA-Public Use
  Company Number: JP-SANOFI-AVENTIS-200610775JP

PATIENT
  Age: 43 Year
  Sex: Female
  Weight: 46 kg

DRUGS (8)
  1. DEPAS [Concomitant]
  2. ALLEGRA [Suspect]
     Indication: RHINITIS ALLERGIC
     Dosage: DOSE AS USED: 2 TABLETS DOSE UNIT: 60 MG
     Route: 048
     Dates: start: 20060304, end: 20060307
  3. METHISTA [Concomitant]
     Dosage: DOSE AS USED: 6 TABLETS DOSE UNIT: 200 MG
     Route: 048
     Dates: start: 20060304, end: 20060307
  4. VERAPAMIL HCL [Concomitant]
  5. TOMIRON [Concomitant]
     Dosage: DOSE AS USED: 3 TABLETS DOSE UNIT: 100 MG
     Route: 048
     Dates: start: 20060304, end: 20060307
  6. CONFATANIN [Concomitant]
     Dosage: DOSE AS USED: 1 TABLET DOSE UNIT: 60 MG
     Route: 048
     Dates: start: 20060304, end: 20060307
  7. TRANEXAMIC ACID [Concomitant]
     Dosage: DOSE AS USED: 3 CAPSULES DOSE UNIT: 250 MG
     Route: 048
     Dates: start: 20060304, end: 20060307
  8. FERROUS CITRATE [Concomitant]

REACTIONS (2)
  - MALAISE [None]
  - LOSS OF CONSCIOUSNESS [None]
